FAERS Safety Report 20807708 (Version 1)
Quarter: 2022Q2

REPORT INFORMATION
  Report Type: Report from Study
  Country: GB (occurrence: GB)
  Receive Date: 20220510
  Receipt Date: 20220510
  Transmission Date: 20220721
  Serious: Yes (Life-Threatening, Hospitalization)
  Sender: FDA-Public Use
  Company Number: GB-MYLANLABS-2022M1034160

PATIENT
  Age: 53 Year
  Sex: Male

DRUGS (4)
  1. AMIODARONE [Suspect]
     Active Substance: AMIODARONE
     Indication: Ventricular tachycardia
     Dosage: 200 MILLIGRAM, QH
     Route: 042
     Dates: start: 201307
  2. CARVEDILOL [Suspect]
     Active Substance: CARVEDILOL
     Indication: Ventricular tachycardia
     Dosage: UNK
     Route: 042
  3. LIDOCAINE HYDROCHLORIDE [Suspect]
     Active Substance: LIDOCAINE HYDROCHLORIDE
     Indication: Ventricular tachycardia
     Dosage: UNK
     Route: 042
  4. REPLAGAL [Concomitant]
     Active Substance: AGALSIDASE ALFA
     Indication: Drug therapy
     Dosage: UNK
     Route: 065
     Dates: start: 201307

REACTIONS (2)
  - Drug ineffective [Unknown]
  - Off label use [Unknown]
